FAERS Safety Report 14195311 (Version 1)
Quarter: 2017Q4

REPORT INFORMATION
  Report Type: Spontaneous
  Country: US (occurrence: US)
  Receive Date: 20171116
  Receipt Date: 20171116
  Transmission Date: 20180321
  Serious: No
  Sender: FDA-Public Use
  Company Number: US-EISAI MEDICAL RESEARCH-EC-2017-032979

PATIENT
  Age: 87 Year
  Sex: Male
  Weight: 65.77 kg

DRUGS (15)
  1. METOPROLOL TARTRATE. [Suspect]
     Active Substance: METOPROLOL TARTRATE
     Indication: PRODUCT USED FOR UNKNOWN INDICATION
     Route: 048
  2. FINASTERIDE. [Concomitant]
     Active Substance: FINASTERIDE
  3. TAMSULOSIN HCL [Concomitant]
     Active Substance: TAMSULOSIN
  4. VITAMIN D3 [Concomitant]
     Active Substance: CHOLECALCIFEROL
  5. ALIGN [Concomitant]
     Active Substance: BIFIDOBACTERIUM LONGUM SUBSP. INFANTIS
  6. DONEPEZIL. [Suspect]
     Active Substance: DONEPEZIL
     Indication: DEMENTIA
     Route: 048
  7. MIRTAZAPINE. [Suspect]
     Active Substance: MIRTAZAPINE
     Indication: DEPRESSION
  8. DOCUSATE SODIUM. [Concomitant]
     Active Substance: DOCUSATE SODIUM
  9. LYRICA [Suspect]
     Active Substance: PREGABALIN
     Indication: PAIN
     Route: 048
  10. AMLODIPINE BESILATE [Suspect]
     Active Substance: AMLODIPINE BESYLATE
     Indication: ANGINA PECTORIS
     Route: 048
  11. MIRTAZAPINE. [Suspect]
     Active Substance: MIRTAZAPINE
     Indication: ANXIETY
     Route: 048
     Dates: start: 2016
  12. VITAMIN C [Concomitant]
     Active Substance: ASCORBIC ACID
  13. OMEGA 3 FISH OIL [Concomitant]
     Active Substance: FISH OIL\OMEGA-3 FATTY ACIDS
  14. ALLOPURINOL. [Concomitant]
     Active Substance: ALLOPURINOL
  15. PRESERVISION AREDS [Concomitant]
     Active Substance: MINERALS\VITAMINS

REACTIONS (1)
  - Skin discolouration [Unknown]

NARRATIVE: CASE EVENT DATE: 2017
